FAERS Safety Report 7719392-0 (Version None)
Quarter: 2011Q3

REPORT INFORMATION
  Report Type: 
  Country: None (occurrence: None)
  Receive Date: 20110830
  Receipt Date: 20110825
  Transmission Date: 20111222
  Serious: Yes (Hospitalization)
  Sender: FDA-Public Use
  Company Number: JP-B.I. PHARMACEUTICALS,INC./RIDGEFIELD-2011-BP-20792NB

PATIENT

DRUGS (1)
  1. BI-SIFROL TABLETS [Suspect]
     Indication: RAPID EYE MOVEMENTS SLEEP ABNORMAL
     Dosage: 0.5 MG
     Route: 048

REACTIONS (2)
  - GASTROCOELE [None]
  - ENTEROCELE [None]
